FAERS Safety Report 17414459 (Version 4)
Quarter: 2021Q3

REPORT INFORMATION
  Report Type: Spontaneous
  Country: US (occurrence: US)
  Receive Date: 20200213
  Receipt Date: 20210826
  Transmission Date: 20211014
  Serious: Yes (Other)
  Sender: FDA-Public Use
  Company Number: US-PFIZER INC-2019133319

PATIENT
  Age: 74 Year
  Sex: Female
  Weight: 65.5 kg

DRUGS (3)
  1. LYRICA [Suspect]
     Active Substance: PREGABALIN
     Indication: PAIN
     Dosage: 75 MG, ONCE A DAY (ONE A DAY)
  2. LYRICA [Suspect]
     Active Substance: PREGABALIN
     Indication: FIBROMYALGIA
     Dosage: 75 MG, TWICE A DAY
     Route: 048
     Dates: start: 2008
  3. LYRICA [Suspect]
     Active Substance: PREGABALIN
     Indication: NEUROPATHY PERIPHERAL
     Dosage: 37.5 MG, UNK [STARTED TAKING HALF HER DOSE ]

REACTIONS (10)
  - Nervousness [Recovering/Resolving]
  - Sinus disorder [Unknown]
  - Respiratory tract infection [Unknown]
  - Withdrawal syndrome [Unknown]
  - Intentional product misuse [Unknown]
  - Malaise [Unknown]
  - Agitation [Not Recovered/Not Resolved]
  - Tremor [Recovering/Resolving]
  - Influenza [Unknown]
  - Dysphonia [Unknown]

NARRATIVE: CASE EVENT DATE: 201903
